FAERS Safety Report 8759119 (Version 2)
Quarter: 2012Q4

REPORT INFORMATION
  Report Type: 
  Country: CN (occurrence: CN)
  Receive Date: 20120829
  Receipt Date: 20120911
  Transmission Date: 20130627
  Serious: Yes (Hospitalization)
  Sender: FDA-Public Use
  Company Number: CN-B.I. PHARMACEUTICALS,INC./RIDGEFIELD-2012-CS-00879CS

PATIENT
  Age: 63 Year

DRUGS (2)
  1. SIFROL [Suspect]
     Indication: PARKINSON^S DISEASE
     Dosage: 1 mg
  2. MADOPAR [Concomitant]
     Indication: PARKINSON^S DISEASE
     Dosage: 2 tablets

REACTIONS (1)
  - Multiple system atrophy [Unknown]
